FAERS Safety Report 18663537 (Version 2)
Quarter: 2021Q1

REPORT INFORMATION
  Report Type: Spontaneous
  Country: JP (occurrence: JP)
  Receive Date: 20201224
  Receipt Date: 20210127
  Transmission Date: 20210419
  Serious: Yes (Death, Hospitalization)
  Sender: FDA-Public Use
  Company Number: JP-BAXTER-2020BAX025922

PATIENT
  Age: 78 Year
  Sex: Female
  Weight: 47.7 kg

DRUGS (4)
  1. DOXIL [Suspect]
     Active Substance: DOXORUBICIN HYDROCHLORIDE
     Indication: LYMPHOPROLIFERATIVE DISORDER
     Route: 042
     Dates: start: 20200708, end: 20201104
  2. BLEOMYCIN [Suspect]
     Active Substance: BLEOMYCIN SULFATE
     Indication: HODGKIN^S DISEASE
     Dosage: LAST DOSE ON 04NOV2020
     Route: 042
     Dates: start: 20200708, end: 20201104
  3. EXAL (VINBLASTINE SULFATE) [Suspect]
     Active Substance: VINBLASTINE SULFATE
     Indication: LYMPHOPROLIFERATIVE DISORDER
     Route: 042
     Dates: start: 20200708, end: 20201104
  4. DACARBAZINE. [Suspect]
     Active Substance: DACARBAZINE
     Indication: LYMPHOPROLIFERATIVE DISORDER
     Route: 042
     Dates: start: 20200708, end: 20201104

REACTIONS (1)
  - Interstitial lung disease [Fatal]

NARRATIVE: CASE EVENT DATE: 20201107
